FAERS Safety Report 8177385-6 (Version None)
Quarter: 2012Q1

REPORT INFORMATION
  Report Type: 
  Country: None (occurrence: None)
  Receive Date: 20120301
  Receipt Date: 20120223
  Transmission Date: 20120608
  Serious: Yes (Other)
  Sender: FDA-Public Use
  Company Number: JP-ROCHE-1043668

PATIENT

DRUGS (2)
  1. ALTEPLASE [Suspect]
     Indication: CEREBROVASCULAR ACCIDENT
     Route: 042
  2. EDARAVONE [Suspect]
     Indication: CEREBROVASCULAR ACCIDENT
     Route: 042

REACTIONS (1)
  - NEUROLOGICAL DECOMPENSATION [None]
